FAERS Safety Report 5028995-6 (Version None)
Quarter: 2006Q2

REPORT INFORMATION
  Report Type: 
  Country: None (occurrence: None)
  Receive Date: 20060619
  Receipt Date: 20060606
  Transmission Date: 20061013
  Serious: Yes (Congenital Anomaly)
  Sender: FDA-Public Use
  Company Number: PHFR2006GB01906

PATIENT
  Sex: Female
  Weight: 2.68 kg

DRUGS (3)
  1. GLEEVEC [Suspect]
     Route: 064
  2. INTERFERON [Concomitant]
     Route: 064
  3. GRANULOCYTE STIMULATING FACTORS [Concomitant]
     Route: 064

REACTIONS (3)
  - CONGENITAL HAND MALFORMATION [None]
  - DRUG EXPOSURE DURING PREGNANCY [None]
  - PILONIDAL CYST CONGENITAL [None]
